FAERS Safety Report 6054826-1 (Version None)
Quarter: 2009Q1

REPORT INFORMATION
  Report Type: 
  Country: None (occurrence: None)
  Receive Date: 20090128
  Receipt Date: 20090119
  Transmission Date: 20090719
  Serious: Yes (Hospitalization, Disabling, Other)
  Sender: FDA-Public Use
  Company Number: US-ROCHE-408610

PATIENT
  Sex: Male
  Weight: 77.1 kg

DRUGS (2)
  1. ACCUTANE [Suspect]
     Indication: ACNE
     Route: 048
     Dates: start: 19880401, end: 19881001
  2. MINOXIDIL [Concomitant]
     Route: 061

REACTIONS (19)
  - ADENOMA BENIGN [None]
  - ARTHRITIS [None]
  - BACK PAIN [None]
  - COLITIS [None]
  - COLITIS ULCERATIVE [None]
  - FATIGUE [None]
  - GASTROINTESTINAL DISORDER [None]
  - HEADACHE [None]
  - INFLAMMATORY BOWEL DISEASE [None]
  - INTERVERTEBRAL DISC DEGENERATION [None]
  - INTESTINAL HAEMORRHAGE [None]
  - MELANOCYTIC NAEVUS [None]
  - MULTI-ORGAN DISORDER [None]
  - MUSCULOSKELETAL DISORDER [None]
  - MYALGIA [None]
  - MYELOPATHY [None]
  - NECK PAIN [None]
  - RECTAL HAEMORRHAGE [None]
  - SPINAL OSTEOARTHRITIS [None]
